FAERS Safety Report 5644314-6 (Version None)
Quarter: 2008Q1

REPORT INFORMATION
  Report Type: 
  Country: None (occurrence: None)
  Receive Date: 20080227
  Receipt Date: 20080218
  Transmission Date: 20080703
  Serious: Yes (Death, Life-Threatening)
  Sender: FDA-Public Use
  Company Number: 2008US000547

PATIENT
  Age: 42 Year
  Sex: Male

DRUGS (13)
  1. PROGRAF [Suspect]
     Indication: RENAL TRANSPLANT
     Dosage: 6 MG, BID, ORAL
     Route: 048
     Dates: start: 20040603, end: 20070810
  2. CELLCEPT [Concomitant]
  3. PREDNISOLONE ACETATE [Concomitant]
  4. LASIX (FUROSEMIDE ACETATE) [Concomitant]
  5. CARDIZEM [Concomitant]
  6. CARDURA [Concomitant]
  7. FLORINEF [Concomitant]
  8. MULTIVITAMIN (VITAMIN NOS) [Concomitant]
  9. PROTONIX [Concomitant]
  10. SENSIPAR (CINACALCET HYDROCHLORIDE) [Concomitant]
  11. LIPITOR [Concomitant]
  12. NPH INSULIN (INSULIN INJECTION, ISOPHANE) [Concomitant]
  13. INSULIN (INSULIN HUMAN) [Concomitant]

REACTIONS (1)
  - MYOCARDIAL INFARCTION [None]
